FAERS Safety Report 8900811 (Version 1)
Quarter: 2012Q4

REPORT INFORMATION
  Report Type: 
  Country: US (occurrence: US)
  Receive Date: 20121109
  Receipt Date: 20121109
  Transmission Date: 20130627
  Serious: No
  Sender: FDA-Public Use
  Company Number: US-PFIZER INC-2012280262

PATIENT
  Age: 48 Year
  Sex: Male
  Weight: 95.24 kg

DRUGS (1)
  1. EFFEXOR XR [Suspect]
     Indication: DEPRESSION
     Dosage: 150 mg, 1x/day
     Route: 048
     Dates: start: 200604

REACTIONS (1)
  - Erectile dysfunction [Not Recovered/Not Resolved]
